FAERS Safety Report 7035574-8 (Version None)
Quarter: 2010Q4

REPORT INFORMATION
  Report Type: 
  Country: None (occurrence: None)
  Receive Date: 20101008
  Receipt Date: 20100928
  Transmission Date: 20110411
  Serious: Yes (Disabling, Other)
  Sender: FDA-Public Use
  Company Number: BR-PFIZER INC-2010077094

PATIENT
  Age: 72 Year
  Sex: Female

DRUGS (2)
  1. XALATAN [Suspect]
     Route: 047
  2. XALATAN [Suspect]
     Dosage: LATANOPROST 3UG / TIMOLOL MALEATE 300UG, ONCE DAILY
     Route: 047
     Dates: start: 20080621

REACTIONS (6)
  - BLINDNESS [None]
  - CORNEAL TRANSPLANT [None]
  - EYE OPERATION [None]
  - HERPES OPHTHALMIC [None]
  - HYPERSENSITIVITY [None]
  - VISUAL ACUITY REDUCED [None]
